FAERS Safety Report 13836734 (Version 1)
Quarter: 2017Q3

REPORT INFORMATION
  Report Type: Spontaneous
  Country: US (occurrence: US)
  Receive Date: 20170804
  Receipt Date: 20170804
  Transmission Date: 20171127
  Serious: No
  Sender: FDA-Public Use
  Company Number: US-ROCHE-1004631

PATIENT
  Sex: Female

DRUGS (1)
  1. BONVIVA [Suspect]
     Active Substance: IBANDRONATE SODIUM
     Indication: PRODUCT USED FOR UNKNOWN INDICATION
     Route: 065

REACTIONS (5)
  - Temperature intolerance [Unknown]
  - Pain in jaw [Recovering/Resolving]
  - Oral pain [Unknown]
  - Temporomandibular joint syndrome [Recovering/Resolving]
  - White blood cell count decreased [Unknown]
